FAERS Safety Report 6449970-0 (Version None)
Quarter: 2009Q4

REPORT INFORMATION
  Report Type: 
  Country: None (occurrence: None)
  Receive Date: 20091120
  Receipt Date: 20091120
  Transmission Date: 20100525
  Serious: Yes (Other)
  Sender: FDA-Public Use
  Company Number: None

PATIENT
  Age: 9 Year
  Sex: Male
  Weight: 25.855 kg

DRUGS (1)
  1. SINGULAIR [Suspect]
     Indication: ASTHMA
     Dosage: 1 CHEWABLE TABLET DAILY PO
     Route: 048
     Dates: start: 20070101, end: 20091118

REACTIONS (3)
  - AGGRESSION [None]
  - COPROLALIA [None]
  - THINKING ABNORMAL [None]
